FAERS Safety Report 8406981-3 (Version None)
Quarter: 2012Q2

REPORT INFORMATION
  Report Type: 
  Country: None (occurrence: None)
  Receive Date: 20120604
  Receipt Date: 20120531
  Transmission Date: 20120825
  Serious: Yes (Other)
  Sender: FDA-Public Use
  Company Number: FR-TEVA-338288ISR

PATIENT
  Age: 34 Year
  Sex: Female

DRUGS (6)
  1. ONDANSETRON [Concomitant]
     Indication: PROPHYLAXIS OF NAUSEA AND VOMITING
     Route: 065
  2. DOXORUBICIN HCL [Suspect]
     Indication: SPINDLE CELL SARCOMA
     Dosage: 50 MG/M2 ON DAY 1 OF 3-WEEK AI50 CYCLE
     Route: 040
  3. IFOSFAMIDE [Suspect]
     Indication: SPINDLE CELL SARCOMA
     Dosage: 5 G/M2 OVER 48H ON DAYS 1-2 OF 3-WEEK AI50 CYCLE; WITH 3L IV FLUIDS/24H (NACL 0.9%)
     Route: 041
  4. SODIUM CHLORIDE [Concomitant]
     Dosage: 3L OF IV FLUIDS/24 HOURS (NACL 0.9%) ON DAYS 1-2 OF 3-WEEK AI50 CYCLE
     Route: 041
  5. METOCLOPRAMIDE [Concomitant]
     Indication: PROPHYLAXIS OF NAUSEA AND VOMITING
     Route: 042
  6. MESNA [Concomitant]
     Dosage: CONTINUOUS INFUSION; 100% OF IFOSFAMIDE DOSE 15MIN PRIOR TO IFOSFAMIDE, 100% FOR 8H AFTER IFOSFAMIDE
     Route: 041

REACTIONS (4)
  - OLIGOHYDRAMNIOS [None]
  - ALOPECIA [None]
  - MATERNAL EXPOSURE DURING PREGNANCY [None]
  - PREMATURE DELIVERY [None]
